FAERS Safety Report 4892526-1 (Version None)
Quarter: 2006Q1

REPORT INFORMATION
  Report Type: 
  Country: None (occurrence: None)
  Receive Date: 20060126
  Receipt Date: 20060105
  Transmission Date: 20060701
  Serious: Yes (Congenital Anomaly)
  Sender: FDA-Public Use
  Company Number: US-BRISTOL-MYERS SQUIBB COMPANY-13238167

PATIENT
  Age: 1 Day
  Sex: Male

DRUGS (4)
  1. REYATAZ [Suspect]
     Dosage: 5 WEEKS TO 27 WEEKS GESTATION
     Route: 064
     Dates: start: 20041210, end: 20050515
  2. NORVIR [Suspect]
     Dosage: 5 TO 27 WEEKS
     Route: 064
     Dates: start: 20041210, end: 20050515
  3. TRUVADA [Suspect]
     Dosage: 5 WEEKS TILL DELIVERY
     Route: 064
     Dates: start: 20041210, end: 20050712
  4. KALETRA [Suspect]
     Dosage: 27 WEEKS TILL DELIVERY
     Route: 064
     Dates: start: 20050515, end: 20050712

REACTIONS (12)
  - CLEFT PALATE [None]
  - CONGENITAL ANOMALY [None]
  - DIGEORGE'S SYNDROME [None]
  - DRUG EXPOSURE DURING PREGNANCY [None]
  - DYSPHAGIA [None]
  - FALLOT'S TETRALOGY [None]
  - GASTROINTESTINAL MOTILITY DISORDER [None]
  - KIDNEY SMALL [None]
  - NEPHROCALCINOSIS [None]
  - PREGNANCY [None]
  - PREMATURE BABY [None]
  - PULMONARY ARTERY ATRESIA [None]
